FAERS Safety Report 5026107-6 (Version None)
Quarter: 2006Q2

REPORT INFORMATION
  Report Type: 
  Country: None (occurrence: None)
  Receive Date: 20060612
  Receipt Date: 20060612
  Transmission Date: 20061013
  Serious: No
  Sender: FDA-Public Use
  Company Number: None

PATIENT
  Age: 77 Year
  Sex: Female
  Weight: 63.5036 kg

DRUGS (1)
  1. METHOTREXATE [Suspect]
     Indication: RHEUMATOID ARTHRITIS
     Dosage: 12.5 MG /0.5 ML  WEEKLY IM
     Route: 030
     Dates: start: 20060427, end: 20060522

REACTIONS (3)
  - CHEILITIS [None]
  - DISEASE RECURRENCE [None]
  - STOMATITIS [None]
